FAERS Safety Report 4383118-1 (Version None)
Quarter: 2004Q2

REPORT INFORMATION
  Report Type: 
  Country: None (occurrence: None)
  Receive Date: 20040618
  Receipt Date: 20040601
  Transmission Date: 20050107
  Serious: Yes (Hospitalization)
  Sender: FDA-Public Use
  Company Number: JP_040603270

PATIENT
  Age: 72 Year
  Sex: Male

DRUGS (2)
  1. GEMZAR [Suspect]
     Indication: LUNG NEOPLASM MALIGNANT
     Dosage: 1400 MG OTHER
     Route: 042
     Dates: start: 20040406, end: 20040526
  2. UTF  (TEGAFUR) [Concomitant]

REACTIONS (1)
  - INTERSTITIAL LUNG DISEASE [None]
